FAERS Safety Report 4941820-4 (Version None)
Quarter: 2006Q1

REPORT INFORMATION
  Report Type: 
  Country: None (occurrence: None)
  Receive Date: 20060307
  Receipt Date: 20060220
  Transmission Date: 20060701
  Serious: Yes (Hospitalization)
  Sender: FDA-Public Use
  Company Number: FR-2005-025031

PATIENT
  Age: 60 Year
  Sex: Female

DRUGS (4)
  1. BETAFERON(INTERFERON BETA-1B) BETAFERON(INTERFERON BETA-1) INJECTION, [Suspect]
     Indication: MULTIPLE SCLEROSIS
     Dosage: 8 MIU 3X/WEEK SUBCUTANEOUS
     Route: 058
     Dates: start: 20040715, end: 20041212
  2. CORTISONE ACETATE [Concomitant]
  3. DITROPAN [Concomitant]
  4. DIALGIREX (DEXTROPROPOXYPHENE HYDROCHLORIDE) [Concomitant]

REACTIONS (4)
  - CARDIAC PROCEDURE COMPLICATION [None]
  - CORONARY ARTERY THROMBOSIS [None]
  - MYOCARDIAL INFARCTION [None]
  - PERICARDITIS [None]
